FAERS Safety Report 8816309 (Version 1)
Quarter: 2012Q4

REPORT INFORMATION
  Report Type: Spontaneous
  Country: US (occurrence: None)
  Receive Date: 20120928
  Receipt Date: 20120928
  Transmission Date: 20130627
  Serious: Yes (Hospitalization)
  Sender: FDA-Public Use
  Company Number: None

PATIENT
  Age: 56 Year
  Sex: Female

DRUGS (1)
  1. DIVALPROEX SODIUM [Suspect]
     Indication: BIPOLAR AFFECTIVE DISORDER, MANIC
     Dosage: 1500 MG AT BEDTIME PO
     Route: 048
     Dates: start: 20120705, end: 20120821

REACTIONS (4)
  - Hyperammonaemic encephalopathy [None]
  - Delirium [None]
  - Mental status changes [None]
  - Hallucination [None]
